FAERS Safety Report 12314224 (Version 1)
Quarter: 2016Q2

REPORT INFORMATION
  Report Type: Spontaneous
  Country: US (occurrence: US)
  Receive Date: 20160428
  Receipt Date: 20160428
  Transmission Date: 20160815
  Serious: Yes (Other)
  Sender: FDA-Public Use
  Company Number: US-ELI_LILLY_AND_COMPANY-US201604006358

PATIENT
  Sex: Female

DRUGS (1)
  1. CYMBALTA [Suspect]
     Active Substance: DULOXETINE HYDROCHLORIDE
     Indication: PRODUCT USED FOR UNKNOWN INDICATION
     Dosage: UNK, UNKNOWN
     Route: 065

REACTIONS (12)
  - Drug withdrawal syndrome [Unknown]
  - Vomiting [Unknown]
  - Irritability [Unknown]
  - Hot flush [Unknown]
  - Insomnia [Unknown]
  - Suicidal ideation [Unknown]
  - Crying [Unknown]
  - Wrong patient received medication [Unknown]
  - Pain [Unknown]
  - Feeling cold [Unknown]
  - Homicidal ideation [Unknown]
  - Influenza like illness [Unknown]
